FAERS Safety Report 23925242 (Version 1)
Quarter: 2024Q2

REPORT INFORMATION
  Report Type: Spontaneous
  Country: PL (occurrence: PL)
  Receive Date: 20240531
  Receipt Date: 20240531
  Transmission Date: 20240716
  Serious: Yes (Hospitalization)
  Sender: FDA-Public Use
  Company Number: PL-JNJFOC-20240584873

PATIENT
  Age: 64 Year
  Sex: Female

DRUGS (18)
  1. OPSUMIT [Suspect]
     Active Substance: MACITENTAN
     Indication: Pulmonary arterial hypertension
     Route: 048
     Dates: start: 202204
  2. OPSUMIT [Suspect]
     Active Substance: MACITENTAN
     Route: 048
     Dates: start: 202206
  3. OPSUMIT [Suspect]
     Active Substance: MACITENTAN
     Route: 048
     Dates: start: 202211
  4. OPSUMIT [Suspect]
     Active Substance: MACITENTAN
     Route: 048
     Dates: start: 202302
  5. OPSUMIT [Suspect]
     Active Substance: MACITENTAN
     Route: 048
     Dates: start: 202304
  6. SILDENAFIL [Concomitant]
     Active Substance: SILDENAFIL
     Dosage: 100 MG 3X1/4 TABLET
  7. SILDENAFIL [Concomitant]
     Active Substance: SILDENAFIL
     Dates: start: 202006
  8. SILDENAFIL [Concomitant]
     Active Substance: SILDENAFIL
     Dates: start: 202107
  9. SILDENAFIL [Concomitant]
     Active Substance: SILDENAFIL
     Dates: start: 202108
  10. SILDENAFIL [Concomitant]
     Active Substance: SILDENAFIL
     Dates: start: 202204
  11. SILDENAFIL [Concomitant]
     Active Substance: SILDENAFIL
     Dates: start: 202206
  12. SILDENAFIL [Concomitant]
     Active Substance: SILDENAFIL
     Dates: start: 202211
  13. SILDENAFIL [Concomitant]
     Active Substance: SILDENAFIL
     Dates: start: 202302
  14. SILDENAFIL [Concomitant]
     Active Substance: SILDENAFIL
     Dates: start: 202304
  15. LOSARTAN POTASSIUM [Concomitant]
     Active Substance: LOSARTAN POTASSIUM
  16. ATORVASTATIN CALCIUM [Concomitant]
     Active Substance: ATORVASTATIN CALCIUM
  17. NEBIVOLOL [Concomitant]
     Active Substance: NEBIVOLOL
  18. PERINDOPRIL [Concomitant]
     Active Substance: PERINDOPRIL

REACTIONS (5)
  - Epistaxis [Unknown]
  - Systemic scleroderma [Unknown]
  - N-terminal prohormone brain natriuretic peptide increased [Unknown]
  - Blood creatinine increased [Unknown]
  - Oliguria [Unknown]

NARRATIVE: CASE EVENT DATE: 20220601
